FAERS Safety Report 5177028-X (Version None)
Quarter: 2006Q4

REPORT INFORMATION
  Report Type: 
  Country: None (occurrence: None)
  Receive Date: 20061218
  Receipt Date: 20061004
  Transmission Date: 20070319
  Serious: Yes (Hospitalization)
  Sender: FDA-Public Use
  Company Number: JP-JPN-A200604037

PATIENT
  Age: 77 Year
  Sex: Female

DRUGS (10)
  1. VALTREX [Suspect]
     Indication: HERPES ZOSTER
     Dosage: 1000MG THREE TIMES PER DAY
     Route: 048
     Dates: start: 20060929, end: 20061001
  2. ASPIRIN [Concomitant]
     Indication: CEREBRAL INFARCTION
     Dosage: 100MG PER DAY
     Route: 048
     Dates: start: 19991105
  3. ALLOPURINOL [Concomitant]
     Dosage: 100MG PER DAY
     Route: 048
     Dates: start: 19991105
  4. ARTANE [Concomitant]
     Indication: PARKINSON'S DISEASE
     Dosage: 2MG PER DAY
     Route: 048
     Dates: start: 20000405
  5. TERNELIN [Concomitant]
     Indication: MUSCLE TIGHTNESS
     Dosage: 3MG PER DAY
     Route: 048
     Dates: start: 20020109
  6. POLLAKISU [Concomitant]
     Indication: NEUROGENIC BLADDER
     Dosage: 4MG PER DAY
     Route: 048
     Dates: start: 20040125
  7. ROCALTROL [Concomitant]
     Indication: OSTEOPOROSIS
     Dosage: .5MCG PER DAY
     Route: 048
     Dates: start: 20050830
  8. ADALAT [Concomitant]
     Indication: HYPERTENSION
     Dosage: 20MG PER DAY
     Route: 048
     Dates: start: 20051209
  9. ZOVIRAX [Concomitant]
     Route: 062
  10. AZULENE SULFONATE SODIUM [Concomitant]
     Indication: GASTRITIS
     Dosage: 1.5MG PER DAY
     Route: 048
     Dates: start: 19990331

REACTIONS (5)
  - DEPRESSED LEVEL OF CONSCIOUSNESS [None]
  - FEELING ABNORMAL [None]
  - HEPATIC FUNCTION ABNORMAL [None]
  - PLATELET COUNT DECREASED [None]
  - RENAL FAILURE ACUTE [None]
